FAERS Safety Report 8372595-7 (Version None)
Quarter: 2012Q2

REPORT INFORMATION
  Report Type: 
  Country: None (occurrence: None)
  Receive Date: 20120521
  Receipt Date: 20120516
  Transmission Date: 20120825
  Serious: Yes (Other)
  Sender: FDA-Public Use
  Company Number: PHHY2012JP042428

PATIENT
  Sex: Male

DRUGS (9)
  1. LORAZEPAM [Concomitant]
     Dosage: 0.5 MG/ DAY
  2. BETAMAC [Concomitant]
     Route: 048
  3. DIOVAN [Suspect]
     Indication: HYPERTENSION
     Dosage: 40 MG, DAILY
     Route: 048
  4. PLAVIX [Concomitant]
     Route: 048
  5. AMLODIPINE BESYLATE [Concomitant]
     Dosage: 5 MG, QD
     Route: 048
  6. CRESTOR [Concomitant]
     Route: 048
  7. DOMPERIDONE [Concomitant]
     Dosage: 10 MG/DAY
     Route: 048
  8. ZOLOFT [Concomitant]
     Dosage: 0.5 MG/ DAY
     Route: 048
  9. DEPAS [Concomitant]
     Route: 048

REACTIONS (4)
  - BLOOD PRESSURE DECREASED [None]
  - CEREBELLAR INFARCTION [None]
  - NAUSEA [None]
  - DIZZINESS [None]
